FAERS Safety Report 25201378 (Version 7)
Quarter: 2025Q3

REPORT INFORMATION
  Report Type: Spontaneous
  Country: CA (occurrence: CA)
  Receive Date: 20250416
  Receipt Date: 20250923
  Transmission Date: 20251020
  Serious: Yes (Other)
  Sender: CELLTRION
  Company Number: CA-CELLTRION INC.-2025CA007984

PATIENT

DRUGS (2)
  1. YUFLYMA [Suspect]
     Active Substance: ADALIMUMAB-AATY
     Indication: Colitis ulcerative
     Dosage: 40 MG, EVERY 7 DAYS
     Route: 058
     Dates: start: 20250307, end: 2025
  2. YUFLYMA [Suspect]
     Active Substance: ADALIMUMAB-AATY

REACTIONS (9)
  - Dyschezia [Unknown]
  - Haematochezia [Unknown]
  - Pain [Unknown]
  - Diarrhoea [Unknown]
  - Therapy change [Unknown]
  - Therapeutic response changed [Unknown]
  - Drug ineffective [Unknown]
  - Therapy interrupted [Unknown]
  - Product prescribing issue [Unknown]
